FAERS Safety Report 20707392 (Version 4)
Quarter: 2022Q4

REPORT INFORMATION
  Report Type: Spontaneous
  Country: US (occurrence: US)
  Receive Date: 20220413
  Receipt Date: 20221118
  Transmission Date: 20230113
  Serious: No
  Sender: FDA-Public Use
  Company Number: US-BRISTOL-MYERS SQUIBB COMPANY-2022-016527

PATIENT
  Age: 71 Year
  Sex: Female
  Weight: 89.81 kg

DRUGS (5)
  1. REVLIMID [Suspect]
     Active Substance: LENALIDOMIDE
     Indication: Plasma cell myeloma
     Dosage: TAKE 1 CAPSULE BY MOUTH DAILY FOR 14  CONSECUTIVE DAYS EVERY 21 DAY CYCLE
     Route: 048
     Dates: start: 20200123
  2. REVLIMID [Suspect]
     Active Substance: LENALIDOMIDE
     Dosage: 25 MILLIGRAM
     Route: 048
     Dates: start: 20200421
  3. REVLIMID [Suspect]
     Active Substance: LENALIDOMIDE
     Dosage: 1 CAPSULE DAILY FOR 14 DAYS PER 21 DAY CYCLE
     Route: 048
     Dates: start: 20220514, end: 20220604
  4. REVLIMID [Suspect]
     Active Substance: LENALIDOMIDE
     Dosage: FREQUENCY: 1QD X14 THEN 7 DAYS OFF.
     Route: 048
     Dates: start: 20200123
  5. REVLIMID [Suspect]
     Active Substance: LENALIDOMIDE
     Dosage: D 1-14 Q 21 DAYS
     Route: 048
     Dates: start: 20200421

REACTIONS (6)
  - Diarrhoea [Recovering/Resolving]
  - Oedema [Recovering/Resolving]
  - Bladder dysfunction [Recovering/Resolving]
  - Renal disorder [Not Recovered/Not Resolved]
  - Intentional product use issue [Unknown]
  - Blood potassium decreased [Unknown]
